FAERS Safety Report 6388363-1 (Version None)
Quarter: 2009Q4

REPORT INFORMATION
  Report Type: 
  Country: None (occurrence: None)
  Receive Date: 20091005
  Receipt Date: 20091001
  Transmission Date: 20100525
  Serious: Yes (Other)
  Sender: FDA-Public Use
  Company Number: IE-ABBOTT-09P-229-0600450-00

PATIENT
  Age: 75 Year
  Sex: Female

DRUGS (1)
  1. HUMIRA [Suspect]
     Indication: DRUG USE FOR UNKNOWN INDICATION
     Dates: start: 20090701, end: 20090701

REACTIONS (1)
  - RASH ERYTHEMATOUS [None]
